FAERS Safety Report 17773626 (Version 2)
Quarter: 2020Q2

REPORT INFORMATION
  Report Type: Spontaneous
  Country: BR (occurrence: BR)
  Receive Date: 20200513
  Receipt Date: 20200610
  Transmission Date: 20200714
  Serious: Yes (Hospitalization, Other)
  Sender: FDA-Public Use
  Company Number: BR-ASTRAZENECA-2020SE48294

PATIENT
  Age: 960 Month
  Sex: Male

DRUGS (11)
  1. ZOLPIDEM [Concomitant]
     Active Substance: ZOLPIDEM TARTRATE
     Dosage: DAILY
  2. SOMALGIN [Concomitant]
     Active Substance: ASPIRIN\DIHYDROXYALUMINUM AMINOACETATE ANHYDROUS\MAGNESIUM CARBONATE
     Dosage: DAILY
  3. DRAMIN B6 [Concomitant]
     Dosage: DAILY
  4. LISADOR DIP [Concomitant]
     Dosage: DAILY
  5. JANUMET [Concomitant]
     Active Substance: METFORMIN HYDROCHLORIDE\SITAGLIPTIN PHOSPHATE
     Dosage: DAILY
  6. PULMICORT TURBUHALER [Suspect]
     Active Substance: BUDESONIDE
     Indication: EMPHYSEMA
     Dosage: 0.25MG/ML TWO TIMES A DAY
     Route: 055
     Dates: start: 20200402, end: 20200403
  7. LABIRIN [Concomitant]
     Active Substance: BETAHISTINE
  8. ROSUVASTATIN (SANDOZ) [Concomitant]
  9. NOVALGINA [Concomitant]
     Active Substance: METAMIZOLE SODIUM
     Dosage: DAILY
  10. RAZAPINA [Concomitant]
     Active Substance: MIRTAZAPINE
  11. CONCOR [Concomitant]
     Active Substance: BISOPROLOL FUMARATE

REACTIONS (8)
  - Haematochezia [Recovered/Resolved]
  - Intentional product misuse [Recovered/Resolved]
  - Diverticulitis [Recovered/Resolved]
  - Asthenia [Recovered/Resolved]
  - Product storage error [Recovered/Resolved]
  - Intestinal haemorrhage [Recovered/Resolved]
  - Diarrhoea [Recovered/Resolved]
  - Arrhythmia [Recovered/Resolved]

NARRATIVE: CASE EVENT DATE: 202004
